FAERS Safety Report 5865336-6 (Version None)
Quarter: 2008Q3

REPORT INFORMATION
  Report Type: 
  Country: None (occurrence: None)
  Receive Date: 20080829
  Receipt Date: 20080822
  Transmission Date: 20090109
  Serious: Yes (Other)
  Sender: FDA-Public Use
  Company Number: US-ASTRAZENECA-2008UW17184

PATIENT
  Age: 76 Year
  Sex: Female

DRUGS (4)
  1. TAMOXIFEN CITRATE [Suspect]
     Indication: BREAST CANCER
     Route: 048
     Dates: start: 20000101, end: 20050101
  2. NORVASC [Concomitant]
  3. LOVASTATIN [Concomitant]
  4. ENALAPRIL MALEATE [Concomitant]

REACTIONS (3)
  - CATARACT [None]
  - FATIGUE [None]
  - SKIN CANCER [None]
